FAERS Safety Report 9442362 (Version 1)
Quarter: 2013Q3

REPORT INFORMATION
  Report Type: Spontaneous
  Country: US (occurrence: US)
  Receive Date: 20130806
  Receipt Date: 20130806
  Transmission Date: 20140515
  Serious: No
  Sender: FDA-Public Use
  Company Number: US-GLAXOSMITHKLINE-A1011869A

PATIENT
  Age: 50 Year
  Sex: Female

DRUGS (2)
  1. ADVAIR [Suspect]
     Indication: CHRONIC OBSTRUCTIVE PULMONARY DISEASE
     Dosage: 1PUFF TWICE PER DAY
     Route: 055
     Dates: start: 20130206, end: 20130206
  2. MULTIPLE MEDICATIONS [Concomitant]

REACTIONS (3)
  - Migraine [Unknown]
  - Tremor [Unknown]
  - Insomnia [Unknown]
